FAERS Safety Report 24294267 (Version 1)
Quarter: 2024Q3

REPORT INFORMATION
  Report Type: Spontaneous
  Country: US (occurrence: US)
  Receive Date: 20240906
  Receipt Date: 20240906
  Transmission Date: 20241016
  Serious: No
  Sender: DOMPE FARMACEUTICI
  Company Number: US-FARMAPROD-202406-2331

PATIENT
  Sex: Female

DRUGS (4)
  1. OXERVATE [Suspect]
     Active Substance: CENEGERMIN-BKBJ
     Indication: Neurotrophic keratopathy
     Route: 047
     Dates: start: 20240612
  2. MULTIVITAMIN GUMMIES [Concomitant]
     Dosage: GUMMIES
  3. COLLAGEN [Concomitant]
     Active Substance: COLLAGEN
     Dosage: 125-740MG
  4. MELATONIN [Concomitant]
     Active Substance: MELATONIN

REACTIONS (3)
  - Vision blurred [Unknown]
  - Lacrimation increased [Unknown]
  - Eye pain [Unknown]
